FAERS Safety Report 7894208-0 (Version None)
Quarter: 2011Q4

REPORT INFORMATION
  Report Type: 
  Country: None (occurrence: None)
  Receive Date: 20111104
  Receipt Date: 20111102
  Transmission Date: 20120403
  Serious: Yes (Death, Other)
  Sender: FDA-Public Use
  Company Number: PHEH2011US08257

PATIENT
  Sex: Male
  Weight: 64.853 kg

DRUGS (1)
  1. AFINITOR [Suspect]
     Indication: MALIGNANT NEOPLASM OF ISLETS OF LANGERHANS
     Dosage: 10 MG, DAILY
     Route: 048
     Dates: start: 20110803

REACTIONS (3)
  - PANCREATIC NEUROENDOCRINE TUMOUR METASTATIC [None]
  - NEOPLASM MALIGNANT [None]
  - NEOPLASM PROGRESSION [None]
